FAERS Safety Report 6232464-5 (Version None)
Quarter: 2009Q2

REPORT INFORMATION
  Report Type: 
  Country: None (occurrence: None)
  Receive Date: 20090615
  Receipt Date: 20090601
  Transmission Date: 20091009
  Serious: Yes (Hospitalization)
  Sender: FDA-Public Use
  Company Number: ENDC20090024

PATIENT
  Age: 64 Year
  Sex: Female

DRUGS (8)
  1. ENDOCET 7.5MG/500MG [Suspect]
     Indication: PAIN
     Dosage: 1 TABLET Q6H PRN, PER ORAL
     Route: 048
     Dates: start: 20090515, end: 20090519
  2. OXYCODONE HCL AND ACETAMINOPHEN [Suspect]
     Indication: PAIN
     Dosage: 1 TABLET Q6H PRN
     Dates: start: 20090520
  3. DIOVAN [Concomitant]
  4. ACTOS [Concomitant]
  5. LANTUS [Concomitant]
  6. PROZAC [Concomitant]
  7. ALPRAZOLAM [Concomitant]
  8. ASPIRIN [Concomitant]

REACTIONS (5)
  - CORONARY ARTERY OCCLUSION [None]
  - DRUG INEFFECTIVE [None]
  - DYSGEUSIA [None]
  - MYOCARDIAL INFARCTION [None]
  - PRODUCT COUNTERFEIT [None]
